FAERS Safety Report 4645842-2 (Version None)
Quarter: 2005Q2

REPORT INFORMATION
  Report Type: 
  Country: None (occurrence: None)
  Receive Date: 20050425
  Receipt Date: 20050412
  Transmission Date: 20051028
  Serious: Yes (Death)
  Sender: FDA-Public Use
  Company Number: S05-USA-01935-01

PATIENT
  Age: 29 Year
  Sex: Male
  Weight: 72.5755 kg

DRUGS (2)
  1. CELEXA [Suspect]
     Indication: PANIC ATTACK
     Dates: start: 20040101
  2. DIAZEPAM [Concomitant]

REACTIONS (10)
  - ALCOHOL USE [None]
  - FAT NECROSIS [None]
  - HEPATIC FAILURE [None]
  - HEPATIC NECROSIS [None]
  - HEPATOMEGALY [None]
  - PANCREATIC NECROSIS [None]
  - PULMONARY OEDEMA [None]
  - RENAL FAILURE [None]
  - RENAL TUBULAR NECROSIS [None]
  - TOXICOLOGIC TEST ABNORMAL [None]
